FAERS Safety Report 7763392-1 (Version None)
Quarter: 2011Q3

REPORT INFORMATION
  Report Type: 
  Country: None (occurrence: None)
  Receive Date: 20110920
  Receipt Date: 20110913
  Transmission Date: 20111222
  Serious: Yes (Other)
  Sender: FDA-Public Use
  Company Number: FR-PFIZER INC-2011206963

PATIENT
  Age: 80 Year
  Sex: Male

DRUGS (1)
  1. XALATAN [Suspect]
     Indication: OCULAR HYPERTENSION
     Dosage: 1 GTT, 1X/DAY

REACTIONS (2)
  - ABDOMINAL PAIN [None]
  - PROSTATIC SPECIFIC ANTIGEN INCREASED [None]
